FAERS Safety Report 8466124-7 (Version None)
Quarter: 2012Q2

REPORT INFORMATION
  Report Type: 
  Country: None (occurrence: None)
  Receive Date: 20120626
  Receipt Date: 20120619
  Transmission Date: 20120825
  Serious: Yes (Other)
  Sender: FDA-Public Use
  Company Number: US-CELGENEUS-163-21880-12063011

PATIENT
  Sex: Male

DRUGS (17)
  1. PREDNISONE TAB [Concomitant]
     Dosage: 5 MILLIGRAM
     Route: 048
     Dates: start: 20120412
  2. HYDROXYUREA [Concomitant]
     Dosage: 500 MILLIGRAM
     Route: 048
     Dates: start: 20120412
  3. REVLIMID [Suspect]
     Dosage: 5 MILLIGRAM
     Route: 048
     Dates: start: 20100908
  4. PROAIR HFA [Concomitant]
     Dosage: UNKNOWN
     Route: 055
     Dates: start: 20120327
  5. REVLIMID [Suspect]
     Dosage: 5 MILLIGRAM
     Route: 048
     Dates: start: 20110209, end: 20120617
  6. FERROUS GLUCONATE [Concomitant]
     Dosage: 325 MILLIGRAM
     Route: 048
     Dates: start: 20110218
  7. PENICILLIN VK [Concomitant]
     Dosage: 500 MILLIGRAM
     Route: 048
     Dates: start: 20110218
  8. HYDROCODONE BITARTRATE AND ACETAMINOPHEN [Concomitant]
     Dosage: 5MG/500
     Route: 048
     Dates: start: 20110208
  9. REVLIMID [Suspect]
     Indication: MYELOFIBROSIS
     Dosage: 5 MILLIGRAM
     Route: 048
     Dates: start: 20100301
  10. VENTOLIN HFA [Concomitant]
     Route: 055
     Dates: start: 20120521
  11. OMEPRAZOLE [Concomitant]
     Dosage: 20 MILLIGRAM
     Route: 048
     Dates: start: 20120423
  12. LEVOFLOXACIN [Concomitant]
     Dosage: 750 MILLIGRAM
     Route: 048
     Dates: start: 20120327
  13. DILTIAZEM HYDROCHOLORIDE [Concomitant]
     Dosage: 120 MILLIGRAM
     Route: 048
     Dates: start: 20120328
  14. VERAPAMIL [Concomitant]
     Dosage: 240 MILLIGRAM
     Route: 048
     Dates: start: 20110510
  15. NASONEX [Concomitant]
     Dosage: 12 SPRAYS
     Route: 065
     Dates: start: 20120521
  16. QVAR 40 [Concomitant]
     Dosage: 40 MICROGRAM
     Route: 065
     Dates: start: 20120423
  17. ACETAMINOPHEN [Concomitant]
     Dosage: 325 MILLIGRAM
     Route: 048
     Dates: start: 20110111

REACTIONS (1)
  - SPLENOMEGALY [None]
